FAERS Safety Report 8618942-X (Version None)
Quarter: 2012Q3

REPORT INFORMATION
  Report Type: 
  Country: None (occurrence: None)
  Receive Date: 20120824
  Receipt Date: 20120820
  Transmission Date: 20120928
  Serious: Yes (Other)
  Sender: FDA-Public Use
  Company Number: PHEH2012US016339

PATIENT
  Sex: Male

DRUGS (15)
  1. EXJADE [Suspect]
     Indication: IRON OVERLOAD
     Dosage: 500 MG, 4X DAILY
     Route: 065
  2. VIDAZA [Concomitant]
     Dosage: UNK UKN, UNK
     Route: 065
  3. BUMETANIDE [Concomitant]
     Dosage: 1 MG, DAILY
     Route: 065
  4. BLOOD TRANSFUSION, AUXILIARY PRODUCTS [Concomitant]
     Dosage: UNK UKN, UNK
     Route: 065
  5. AZATHIOPRINE SODIUM [Concomitant]
     Dosage: UNK UKN, UNK
     Route: 065
  6. DILTIAZEM HCL [Concomitant]
     Dosage: 120 MG, DAILY
     Route: 065
  7. FOLIC ACID [Concomitant]
     Dosage: 1 DF, DAILY
     Route: 065
  8. METOPROLOL TARTRATE [Concomitant]
     Dosage: 100 MG, DAILY
  9. LANSOPRAZOLE [Concomitant]
     Dosage: 1 DF, DAILY FOR 14 DAYS
     Route: 065
  10. MULTI-VITAMINS [Concomitant]
     Dosage: 1 DF, UNK
     Route: 065
  11. VITAMIN TAB [Concomitant]
     Dosage: 1 DF, UNK
     Route: 065
  12. ASACOL [Concomitant]
     Dosage: 500 MG, 6XDAILY
  13. POTASSIUM [Concomitant]
     Dosage: 20 MG, DAILY
     Route: 065
  14. DIGOXIN [Concomitant]
     Dosage: 1.25 MG, DAILY
     Route: 065
  15. ONDANSETRON [Concomitant]
     Dosage: 8 MG, UNK
     Route: 065

REACTIONS (5)
  - MYELODYSPLASTIC SYNDROME [None]
  - WEIGHT DECREASED [None]
  - NAUSEA [None]
  - DYSPNOEA [None]
  - COLITIS [None]
